FAERS Safety Report 17866673 (Version 2)
Quarter: 2020Q3

REPORT INFORMATION
  Report Type: Spontaneous
  Country: US (occurrence: US)
  Receive Date: 20200605
  Receipt Date: 20200724
  Transmission Date: 20201103
  Serious: Yes (Other)
  Sender: FDA-Public Use
  Company Number: US-SA-2018SA132898

PATIENT

DRUGS (11)
  1. HEPARIN [Concomitant]
     Active Substance: HEPARIN SODIUM
     Dosage: 300 ML
     Dates: start: 20140102, end: 20140320
  2. HERCEPTIN [Concomitant]
     Active Substance: TRASTUZUMAB
     Dosage: UNK
     Dates: start: 20140320, end: 20140320
  3. NEUPOGEN [Concomitant]
     Active Substance: FILGRASTIM
     Dosage: UNK UNK, QD
     Dates: start: 20140104, end: 20140109
  4. TAXOTERE [Suspect]
     Active Substance: DOCETAXEL
     Indication: BREAST CANCER
     Dosage: 122 MG,Q3W
     Route: 042
     Dates: start: 20131106, end: 20131106
  5. TAXOTERE [Suspect]
     Active Substance: DOCETAXEL
     Dosage: 122 MG,Q3W
     Route: 042
     Dates: start: 20140320, end: 20140320
  6. TYLENOL [Concomitant]
     Active Substance: ACETAMINOPHEN
     Dosage: 1000 MG
     Dates: start: 20140102, end: 20140102
  7. CARBOPLATIN. [Concomitant]
     Active Substance: CARBOPLATIN
     Dosage: UNK
     Dates: start: 20140320, end: 20140320
  8. HERCEPTIN [Concomitant]
     Active Substance: TRASTUZUMAB
     Indication: BREAST CANCER
     Dosage: UNK
     Dates: start: 20131106, end: 20131106
  9. PARAPLATIN [Concomitant]
     Active Substance: CARBOPLATIN
     Indication: BREAST CANCER
  10. CARBOPLATIN. [Concomitant]
     Active Substance: CARBOPLATIN
     Indication: BREAST CANCER
     Dosage: UNK
     Dates: start: 20131106, end: 20131106
  11. DIPHENHYDRAMINE. [Concomitant]
     Active Substance: DIPHENHYDRAMINE
     Dosage: 25 MG
     Dates: start: 20140102, end: 20140102

REACTIONS (2)
  - Psychological trauma [Unknown]
  - Alopecia [Not Recovered/Not Resolved]

NARRATIVE: CASE EVENT DATE: 20131206
